FAERS Safety Report 6391463-3 (Version None)
Quarter: 2009Q4

REPORT INFORMATION
  Report Type: 
  Country: None (occurrence: None)
  Receive Date: 20091006
  Receipt Date: 20091006
  Transmission Date: 20100525
  Serious: Yes (Other)
  Sender: FDA-Public Use
  Company Number: None

PATIENT
  Sex: Male

DRUGS (2)
  1. PEGASYS [Suspect]
     Indication: HEPATITIS C
     Dosage: 180 MCG/0.5.ML ONCE Q WEEK SQ
     Route: 058
     Dates: start: 20090829, end: 20090919
  2. RIBAVIRIN [Suspect]
     Indication: HEPATITIS C
     Dosage: 400 BID PO
     Route: 048
     Dates: start: 20090829, end: 20090919

REACTIONS (1)
  - STREPTOCOCCAL INFECTION [None]
